FAERS Safety Report 19192063 (Version 1)
Quarter: 2021Q2

REPORT INFORMATION
  Report Type: Spontaneous
  Country: US (occurrence: US)
  Receive Date: 20210428
  Receipt Date: 20210428
  Transmission Date: 20210717
  Serious: Yes (Hospitalization, Other)
  Sender: FDA-Public Use
  Company Number: US-PFIZER INC-2020115570

PATIENT
  Age: 57 Year
  Sex: Female
  Weight: 65.77 kg

DRUGS (4)
  1. XELJANZ [Suspect]
     Active Substance: TOFACITINIB CITRATE
     Dosage: 10 MG, 2X/DAY
     Route: 048
     Dates: start: 2017
  2. XELJANZ [Suspect]
     Active Substance: TOFACITINIB CITRATE
     Dosage: 5 MG, 2X/DAY
     Route: 048
  3. MESALAMINE. [Concomitant]
     Active Substance: MESALAMINE
     Indication: COLITIS
     Dosage: UNK
     Dates: end: 202008
  4. XELJANZ [Suspect]
     Active Substance: TOFACITINIB CITRATE
     Indication: COLITIS ULCERATIVE
     Dosage: 5 MG, 2X/DAY
     Route: 048
     Dates: start: 2014

REACTIONS (7)
  - Cervical cord compression [Unknown]
  - Throat irritation [Recovered/Resolved]
  - Gastrooesophageal reflux disease [Unknown]
  - Neuropathy peripheral [Unknown]
  - Arthralgia [Unknown]
  - Pain [Unknown]
  - Gastric disorder [Unknown]

NARRATIVE: CASE EVENT DATE: 201912
